FAERS Safety Report 20044692 (Version 1)
Quarter: 2021Q4

REPORT INFORMATION
  Report Type: Spontaneous
  Country: IT (occurrence: IT)
  Receive Date: 20211108
  Receipt Date: 20211108
  Transmission Date: 20220304
  Serious: Yes (Hospitalization, Other)
  Sender: FDA-Public Use
  Company Number: IT-NOVARTISPH-PHHY2018IT150992

PATIENT
  Age: 49 Year
  Sex: Male

DRUGS (8)
  1. FOSFOMYCIN [Suspect]
     Active Substance: FOSFOMYCIN
     Indication: Klebsiella infection
     Dosage: 8 G, Q8H
     Route: 041
  2. TIGECYCLINE [Suspect]
     Active Substance: TIGECYCLINE
     Indication: Klebsiella infection
     Dosage: 150 MG, UNK (LOADING DOSE)
     Route: 042
  3. TIGECYCLINE [Suspect]
     Active Substance: TIGECYCLINE
     Dosage: 100 MG, Q12H
     Route: 042
  4. MEROPENEM [Suspect]
     Active Substance: MEROPENEM
     Indication: Klebsiella infection
     Dosage: 2 G, Q8H
     Route: 042
  5. VANCOMYCIN [Suspect]
     Active Substance: VANCOMYCIN
     Indication: Clostridium difficile infection
     Dosage: 125 MG, Q6H
     Route: 048
  6. COLISTIMETHATE SODIUM [Suspect]
     Active Substance: COLISTIMETHATE SODIUM
     Indication: Product used for unknown indication
     Dosage: 9 MU LOADING DOSE
     Route: 042
  7. COLISTIMETHATE SODIUM [Suspect]
     Active Substance: COLISTIMETHATE SODIUM
     Dosage: 4.5 MU EVERY 12 H
     Route: 042
  8. FIDAXOMICIN [Concomitant]
     Active Substance: FIDAXOMICIN
     Indication: Clostridium difficile infection
     Dosage: UNK
     Route: 065

REACTIONS (2)
  - Therapeutic product effect incomplete [Unknown]
  - Disease progression [Unknown]
